FAERS Safety Report 13706328 (Version 3)
Quarter: 2017Q3

REPORT INFORMATION
  Report Type: Spontaneous
  Country: US (occurrence: US)
  Receive Date: 20170630
  Receipt Date: 20170712
  Transmission Date: 20171127
  Serious: No
  Sender: FDA-Public Use
  Company Number: US-PFIZER INC-2017281682

PATIENT
  Age: 62 Year
  Sex: Female
  Weight: 64.4 kg

DRUGS (2)
  1. IBRANCE [Suspect]
     Active Substance: PALBOCICLIB
     Dosage: 125 MG, CYCLIC, (DAY 1-21 Q 28 DAYS)
     Route: 048
     Dates: start: 20170614
  2. IBRANCE [Suspect]
     Active Substance: PALBOCICLIB
     Indication: BREAST CANCER METASTATIC
     Dosage: 125 MG, CYCLIC, (DAY 1-21 Q 28 DAYS)
     Route: 048
     Dates: start: 20170613

REACTIONS (3)
  - Neoplasm progression [Unknown]
  - White blood cell count decreased [Unknown]
  - Cough [Not Recovered/Not Resolved]
